FAERS Safety Report 10422317 (Version 1)
Quarter: 2014Q3

REPORT INFORMATION
  Report Type: Spontaneous
  Country: FR (occurrence: FR)
  Receive Date: 20140901
  Receipt Date: 20140901
  Transmission Date: 20150326
  Serious: Yes (Life-Threatening, Hospitalization)
  Sender: FDA-Public Use
  Company Number: PHHY2014FR109053

PATIENT
  Age: 39 Year
  Sex: Male

DRUGS (7)
  1. SOLU-MEDROL [Suspect]
     Active Substance: METHYLPREDNISOLONE SODIUM SUCCINATE
     Indication: JUVENILE IDIOPATHIC ARTHRITIS
     Dosage: 500 MG, DAILY
     Route: 042
     Dates: start: 20131109, end: 20131112
  2. PREDNISONE. [Suspect]
     Active Substance: PREDNISONE
     Indication: JUVENILE IDIOPATHIC ARTHRITIS
     Dosage: UNK UKN, UNK
     Route: 048
     Dates: start: 20131112
  3. GLUCOPHAGE [Suspect]
     Active Substance: METFORMIN HYDROCHLORIDE
     Indication: JUVENILE IDIOPATHIC ARTHRITIS
     Dosage: 500 MG, TID
     Route: 048
     Dates: start: 20131109
  4. ZOMETA [Suspect]
     Active Substance: ZOLEDRONIC ACID
     Indication: JUVENILE IDIOPATHIC ARTHRITIS
     Dosage: 4 MG, ONCE
     Route: 042
     Dates: start: 20131109, end: 20131109
  5. KINERET [Suspect]
     Active Substance: ANAKINRA
     Indication: JUVENILE IDIOPATHIC ARTHRITIS
     Dosage: 100 MG, DAILY
     Route: 058
     Dates: start: 20131109
  6. PREDNISONE. [Suspect]
     Active Substance: PREDNISONE
     Dosage: UNK UKN, UNK
     Route: 048
  7. ZYMA-D2 [Suspect]
     Active Substance: ERGOCALCIFEROL
     Indication: JUVENILE IDIOPATHIC ARTHRITIS
     Dosage: 1000000 IU, UNK
     Route: 048
     Dates: start: 20131109, end: 20131109

REACTIONS (2)
  - Coronary artery occlusion [Recovered/Resolved]
  - Myocardial infarction [Recovered/Resolved]

NARRATIVE: CASE EVENT DATE: 20131114
